FAERS Safety Report 6536830-X (Version None)
Quarter: 2010Q1

REPORT INFORMATION
  Report Type: 
  Country: None (occurrence: None)
  Receive Date: 20100113
  Receipt Date: 20100101
  Transmission Date: 20100710
  Serious: Yes (Disabling, Other)
  Sender: FDA-Public Use
  Company Number: US-PFIZER INC-2007080963

PATIENT
  Sex: Male

DRUGS (1)
  1. LIPITOR [Suspect]

REACTIONS (10)
  - ABASIA [None]
  - BACK INJURY [None]
  - ERECTILE DYSFUNCTION [None]
  - LIMB INJURY [None]
  - LIVER DISORDER [None]
  - NERVE INJURY [None]
  - PAIN [None]
  - RENAL IMPAIRMENT [None]
  - WALKING DISABILITY [None]
  - WEIGHT INCREASED [None]
